FAERS Safety Report 5905788-6 (Version None)
Quarter: 2008Q4

REPORT INFORMATION
  Report Type: 
  Country: None (occurrence: None)
  Receive Date: 20081002
  Receipt Date: 20080926
  Transmission Date: 20090506
  Serious: Yes (Death)
  Sender: FDA-Public Use
  Company Number: A0750165A

PATIENT
  Age: 60 Year
  Sex: Male
  Weight: 159.1 kg

DRUGS (21)
  1. AVANDIA [Suspect]
     Indication: DIABETES MELLITUS
     Dosage: 8MG PER DAY
     Route: 048
     Dates: start: 20011211, end: 20060305
  2. AVANDAMET [Suspect]
     Indication: DIABETES MELLITUS
     Route: 048
     Dates: start: 20050216, end: 20050414
  3. GLUCOPHAGE [Concomitant]
  4. INSULIN [Concomitant]
  5. BYETTA [Concomitant]
     Dates: start: 20060202
  6. PRILOSEC [Concomitant]
  7. PLAVIX [Concomitant]
  8. HYCOMINE [Concomitant]
  9. POTASSIUM CHLORIDE [Concomitant]
  10. MONOPRIL [Concomitant]
  11. METOCLOPRAMIDE [Concomitant]
  12. ASPIRIN [Concomitant]
  13. COMBIVENT [Concomitant]
  14. MOBIC [Concomitant]
  15. VIAGRA [Concomitant]
  16. NEXIUM [Concomitant]
  17. ULTRACET [Concomitant]
  18. LORTAB [Concomitant]
  19. ADIPEX [Concomitant]
  20. VISTARIL [Concomitant]
  21. COGENTIN [Concomitant]

REACTIONS (2)
  - ACUTE MYOCARDIAL INFARCTION [None]
  - CARDIAC FAILURE CONGESTIVE [None]
